FAERS Safety Report 9104906 (Version 2)
Quarter: 2014Q2

REPORT INFORMATION
  Report Type: Report from Study
  Country: JP (occurrence: JP)
  Receive Date: 20130219
  Receipt Date: 20140317
  Transmission Date: 20141212
  Serious: Yes (Hospitalization)
  Sender: FDA-Public Use
  Company Number: PHHY2013JP014951

PATIENT
  Sex: Male

DRUGS (6)
  1. FTY 720 [Suspect]
     Indication: MULTIPLE SCLEROSIS RELAPSE
     Dosage: 0.5 MG, QD
     Route: 048
     Dates: start: 20120628
  2. JUVELA N [Concomitant]
     Dosage: 600 MG, UNK
     Route: 048
  3. LIORESAL [Concomitant]
     Dosage: 30 MG, UNK
     Route: 048
  4. METHYCOBAL [Concomitant]
     Dosage: 1500 UG, UNK
     Route: 048
  5. PONTAL [Concomitant]
     Dosage: 500 MG, UNK
     Route: 048
  6. LENDORMIN [Concomitant]
     Dosage: 0.25 MG, UNK
     Route: 048

REACTIONS (2)
  - Atrioventricular block first degree [Recovered/Resolved]
  - Blood pressure decreased [Recovered/Resolved]
